FAERS Safety Report 20654399 (Version 1)
Quarter: 2022Q1

REPORT INFORMATION
  Report Type: Report from Study
  Country: US (occurrence: US)
  Receive Date: 20220330
  Receipt Date: 20220330
  Transmission Date: 20220423
  Serious: No
  Sender: FDA-Public Use
  Company Number: US-BIOVITRUM-2021US12322

PATIENT
  Age: 8 Year
  Sex: Female

DRUGS (2)
  1. KINERET [Suspect]
     Active Substance: ANAKINRA
     Indication: Pyrexia
     Route: 058
     Dates: start: 202103
  2. KINERET [Suspect]
     Active Substance: ANAKINRA
     Route: 058
     Dates: start: 202103

REACTIONS (9)
  - Pyrexia [Unknown]
  - Inflammation [Unknown]
  - Laboratory test abnormal [Unknown]
  - Condition aggravated [Unknown]
  - Amnesia [Unknown]
  - COVID-19 [Unknown]
  - Taste disorder [Unknown]
  - Intentional product misuse [Unknown]
  - Off label use [Unknown]

NARRATIVE: CASE EVENT DATE: 20210301
